FAERS Safety Report 5062881-0 (Version None)
Quarter: 2006Q3

REPORT INFORMATION
  Report Type: 
  Country: None (occurrence: None)
  Receive Date: 20060724
  Receipt Date: 20060719
  Transmission Date: 20061208
  Serious: Yes (Other)
  Sender: FDA-Public Use
  Company Number: 200610864BYL

PATIENT
  Age: 58 Year
  Sex: Male

DRUGS (3)
  1. ASPIRIN [Suspect]
     Indication: CEREBRAL INFARCTION
     Dosage: 100 MG, QD, ORAL
     Route: 048
     Dates: start: 20060320, end: 20060701
  2. SERMION [Concomitant]
  3. THYRADIN S [Concomitant]

REACTIONS (1)
  - THROMBOCYTOPENIA [None]
